FAERS Safety Report 14537053 (Version 3)
Quarter: 2018Q2

REPORT INFORMATION
  Report Type: Spontaneous
  Country: US (occurrence: US)
  Receive Date: 20180215
  Receipt Date: 20180430
  Transmission Date: 20180711
  Serious: No
  Sender: FDA-Public Use
  Company Number: US-ELI_LILLY_AND_COMPANY-US201802003906

PATIENT
  Age: 77 Year
  Sex: Female

DRUGS (12)
  1. 5-FU                               /00098801/ [Concomitant]
     Active Substance: FLUOROURACIL
     Indication: PRODUCT USED FOR UNKNOWN INDICATION
     Dosage: UNK, WEEKLY (1/W)
  2. ERBITUX [Suspect]
     Active Substance: CETUXIMAB
     Dosage: 200 MG, WEEKLY (1/W)
     Route: 042
     Dates: start: 20180308
  3. ERBITUX [Suspect]
     Active Substance: CETUXIMAB
     Indication: METASTASES TO LUNG
     Dosage: 200 MG, WEEKLY (1/W)
     Route: 042
  4. DEXAMETHASONE. [Concomitant]
     Active Substance: DEXAMETHASONE
     Indication: PRODUCT USED FOR UNKNOWN INDICATION
     Dosage: 20 MG, UNK
     Route: 042
  5. IRINOTECAN [Concomitant]
     Active Substance: IRINOTECAN
     Indication: PRODUCT USED FOR UNKNOWN INDICATION
     Dosage: UNK, WEEKLY (1/W)
  6. BENADRYL [Concomitant]
     Active Substance: DIPHENHYDRAMINE HYDROCHLORIDE
     Indication: PRODUCT USED FOR UNKNOWN INDICATION
  7. ERBITUX [Suspect]
     Active Substance: CETUXIMAB
     Indication: COLORECTAL CANCER
     Dosage: 200 MG, WEEKLY (1/W)
     Route: 042
     Dates: start: 20180125
  8. GAS-X [Concomitant]
     Active Substance: DIMETHICONE
     Indication: ABDOMINAL PAIN LOWER
  9. ASA [Concomitant]
     Active Substance: ASPIRIN
     Indication: PRODUCT USED FOR UNKNOWN INDICATION
  10. LEUCOVORIN                         /00566701/ [Concomitant]
     Active Substance: LEUCOVORIN
     Indication: PRODUCT USED FOR UNKNOWN INDICATION
  11. PEPCID                             /06376601/ [Concomitant]
     Indication: DYSPEPSIA
  12. ALOXI [Concomitant]
     Active Substance: PALONOSETRON HYDROCHLORIDE
     Indication: PRODUCT USED FOR UNKNOWN INDICATION

REACTIONS (21)
  - Oropharyngeal pain [Not Recovered/Not Resolved]
  - Blood magnesium decreased [Recovered/Resolved]
  - Nail disorder [Unknown]
  - Asthenia [Not Recovered/Not Resolved]
  - Carcinoembryonic antigen increased [Unknown]
  - Flatulence [Not Recovered/Not Resolved]
  - Pruritus [Unknown]
  - Lethargy [Not Recovered/Not Resolved]
  - Skin fissures [Unknown]
  - Drug ineffective [Unknown]
  - Glossodynia [Unknown]
  - Fatigue [Unknown]
  - Diarrhoea [Recovered/Resolved]
  - Abdominal pain lower [Not Recovered/Not Resolved]
  - Tongue disorder [Unknown]
  - Dizziness [Unknown]
  - Alopecia [Unknown]
  - Cough [Not Recovered/Not Resolved]
  - Dry skin [Not Recovered/Not Resolved]
  - Decreased appetite [Not Recovered/Not Resolved]
  - Rash [Not Recovered/Not Resolved]

NARRATIVE: CASE EVENT DATE: 20180308
